FAERS Safety Report 12434777 (Version 1)
Quarter: 2016Q2

REPORT INFORMATION
  Report Type: Spontaneous
  Country: US (occurrence: US)
  Receive Date: 20160603
  Receipt Date: 20160603
  Transmission Date: 20160815
  Serious: Yes (Other)
  Sender: FDA-Public Use
  Company Number: US-SAGENTPRD-2016-US-000013

PATIENT
  Age: 19 Month
  Sex: Male
  Weight: 8.8 kg

DRUGS (8)
  1. CEFAZOLIN [Concomitant]
     Active Substance: CEFAZOLIN
  2. PROTAMINE [Concomitant]
     Active Substance: PROTAMINE
  3. ROCURONIUM BROMIDE INJECTION, 50 MG/5 ML [Suspect]
     Active Substance: ROCURONIUM BROMIDE
     Dosage: 20 MG TOTAL DOSE
     Route: 042
     Dates: start: 20160527, end: 20160527
  4. VANCOMYCIN [Concomitant]
     Active Substance: VANCOMYCIN
  5. SEVOFLURANE. [Concomitant]
     Active Substance: SEVOFLURANE
  6. FENTANYL. [Concomitant]
     Active Substance: FENTANYL
  7. MIDAZOLAM [Concomitant]
     Active Substance: MIDAZOLAM\MIDAZOLAM HYDROCHLORIDE
  8. HEPARIN [Concomitant]
     Active Substance: HEPARIN SODIUM

REACTIONS (1)
  - Drug ineffective [Unknown]

NARRATIVE: CASE EVENT DATE: 20160527
